FAERS Safety Report 8621391-1 (Version None)
Quarter: 2012Q3

REPORT INFORMATION
  Report Type: 
  Country: None (occurrence: None)
  Receive Date: 20120824
  Receipt Date: 20120820
  Transmission Date: 20120928
  Serious: Yes (Other)
  Sender: FDA-Public Use
  Company Number: US-PFIZER INC-2012204828

PATIENT
  Age: 71 Year
  Sex: Female
  Weight: 78.912 kg

DRUGS (6)
  1. GLUCOPHAGE XR [Concomitant]
     Indication: DIABETES MELLITUS
     Dosage: 750 MG, DAILY
  2. CALCIUM CARBONATE [Suspect]
     Indication: VITAMIN SUPPLEMENTATION
     Dosage: UNK, 2X/DAY
     Route: 048
     Dates: start: 20120401, end: 20120401
  3. LYRICA [Suspect]
     Indication: NEUROPATHY PERIPHERAL
     Dosage: 50 MG, 2X/DAY
     Route: 048
  4. LYRICA [Suspect]
     Dosage: 50 MG, AS NEEDED
     Route: 048
  5. CALCIUM CARBONATE [Suspect]
     Indication: MINERAL SUPPLEMENTATION
  6. PIOGLITAZONE HYDROCHLORIDE/METFORMIN HYDROCHLORIDE [Concomitant]
     Indication: DIABETES MELLITUS
     Dosage: ^30MG^ DAILY

REACTIONS (2)
  - HAEMATOCHEZIA [None]
  - CONSTIPATION [None]
